FAERS Safety Report 5882604-2 (Version None)
Quarter: 2008Q3

REPORT INFORMATION
  Report Type: 
  Country: None (occurrence: None)
  Receive Date: 20080913
  Receipt Date: 20080827
  Transmission Date: 20090109
  Serious: No
  Sender: FDA-Public Use
  Company Number: US-ABBOTT-08P-163-0470469-00

PATIENT
  Sex: Male
  Weight: 108.96 kg

DRUGS (11)
  1. HUMIRA [Suspect]
     Indication: PSORIATIC ARTHROPATHY
     Route: 058
     Dates: start: 20080301, end: 20080501
  2. ROSUVASTATIN [Concomitant]
     Indication: BLOOD CHOLESTEROL INCREASED
     Route: 048
  3. METFORMIN HCL [Concomitant]
     Indication: DIABETES MELLITUS
     Route: 048
  4. METOPROLOL SUCCINATE [Concomitant]
     Indication: CARDIAC OPERATION
     Route: 048
  5. LISINOPRIL [Concomitant]
     Indication: HYPERTENSION
     Route: 048
  6. CELECOXIB [Concomitant]
     Indication: ARTHRITIS
     Route: 048
  7. CITALOPRAM HYDROBROMIDE [Concomitant]
     Indication: DEPRESSION
     Route: 048
  8. FEXOFENADINE [Concomitant]
     Indication: HYPERSENSITIVITY
     Route: 048
  9. MORNIFLUMATE [Concomitant]
     Indication: URINARY INCONTINENCE
     Route: 048
  10. ISOSORBIDE MONONITRATE [Concomitant]
     Indication: CARDIAC OPERATION
     Route: 048
  11. FUROSEMIDE [Concomitant]
     Indication: CARDIAC OPERATION
     Route: 048

REACTIONS (3)
  - ARTHRITIS [None]
  - HAEMORRHAGE [None]
  - PSORIASIS [None]
